FAERS Safety Report 4367414-X (Version None)
Quarter: 2004Q2

REPORT INFORMATION
  Report Type: 
  Country: None (occurrence: None)
  Receive Date: 20040528
  Receipt Date: 20040528
  Transmission Date: 20050107
  Serious: Yes (Hospitalization)
  Sender: FDA-Public Use
  Company Number: None

PATIENT
  Age: 73 Year
  Sex: Male
  Weight: 81.6475 kg

DRUGS (12)
  1. 13 -CIS RETINOIC ACID [Suspect]
     Indication: METASTATIC NEOPLASM
     Dosage: 70 MG PO (D1-4) QD
     Route: 048
     Dates: start: 20030930, end: 20031024
  2. ESTRAMUSTINE [Suspect]
     Indication: METASTATIC NEOPLASM
     Dosage: 40 MG, PO TID (D1-5)
     Route: 048
     Dates: start: 20030930, end: 20031025
  3. ALPHA INTERFERON [Suspect]
     Indication: METASTATIC NEOPLASM
     Dosage: 11 MU QD, SC (D1-4)
     Route: 058
     Dates: start: 20030930, end: 20031029
  4. TAXOTERE [Suspect]
     Indication: METASTATIC NEOPLASM
     Dosage: 40 MG ONCE IV (D2)
     Route: 042
     Dates: start: 20031001, end: 20031024
  5. OXYCODONE [Concomitant]
  6. OXYCONTIN [Concomitant]
  7. LUPRON [Concomitant]
  8. LOVENOX [Concomitant]
  9. TYLENOL [Concomitant]
  10. ENALAPRIL [Concomitant]
  11. HYTRIN [Concomitant]
  12. CALCIUM CARBONATE [Concomitant]

REACTIONS (6)
  - ANAEMIA [None]
  - GASTROINTESTINAL HAEMORRHAGE [None]
  - HAEMORRHOIDS [None]
  - HYPERGLYCAEMIA [None]
  - HYPOCALCAEMIA [None]
  - RASH ERYTHEMATOUS [None]
